FAERS Safety Report 12532374 (Version 2)
Quarter: 2020Q3

REPORT INFORMATION
  Report Type: Spontaneous
  Country: PT (occurrence: PT)
  Receive Date: 20160706
  Receipt Date: 20200708
  Transmission Date: 20201102
  Serious: Yes (Other)
  Sender: FDA-Public Use
  Company Number: PT-MYLANLABS-2016M1027313

PATIENT
  Age: 17 Year
  Sex: Female

DRUGS (4)
  1. SERTRALINA                         /01011401/ [Concomitant]
     Active Substance: SERTRALINE HYDROCHLORIDE
     Indication: DEPRESSION
     Dosage: 100 MILLIGRAM, QD
  2. TOPIRAMATE. [Suspect]
     Active Substance: TOPIRAMATE
     Indication: INSOMNIA
     Dosage: 50 MILLIGRAM, QD
  3. TOPIRAMATE. [Suspect]
     Active Substance: TOPIRAMATE
     Indication: MIGRAINE
     Dosage: 50 MILLIGRAM, QD
  4. QUETIAPINA                         /01270901/ [Concomitant]
     Active Substance: QUETIAPINE
     Indication: DEPRESSION
     Dosage: 50 MILLIGRAM, QD

REACTIONS (7)
  - Choroidal effusion [Unknown]
  - Recession of chamber angle of eye [Unknown]
  - Acute myopia [Recovered/Resolved]
  - Visual acuity reduced [Recovered/Resolved]
  - Myopia [Unknown]
  - Product use in unapproved indication [Recovered/Resolved]
  - Ciliary body disorder [Unknown]
